FAERS Safety Report 4682247-2 (Version None)
Quarter: 2005Q2

REPORT INFORMATION
  Report Type: 
  Country: None (occurrence: None)
  Receive Date: 20050606
  Receipt Date: 20050523
  Transmission Date: 20051028
  Serious: Yes (Other)
  Sender: FDA-Public Use
  Company Number: PHBS2005GB07780

PATIENT
  Age: 27 Year
  Sex: Female

DRUGS (1)
  1. PILOCARPINE (NVO) [Suspect]
     Indication: MIOSIS

REACTIONS (6)
  - ANGLE CLOSURE GLAUCOMA [None]
  - CORNEAL OEDEMA [None]
  - EYE PAIN [None]
  - INTRAOCULAR LENS EXTRACTION [None]
  - INTRAOCULAR PRESSURE INCREASED [None]
  - LENS DISLOCATION [None]
